FAERS Safety Report 16785733 (Version 2)
Quarter: 2019Q3

REPORT INFORMATION
  Report Type: Spontaneous
  Country: US (occurrence: US)
  Receive Date: 20190909
  Receipt Date: 20190910
  Transmission Date: 20191005
  Serious: No
  Sender: FDA-Public Use
  Company Number: US-PFIZER INC-2019384282

PATIENT
  Age: 23 Year
  Sex: Female

DRUGS (1)
  1. ALDACTONE [Suspect]
     Active Substance: SPIRONOLACTONE
     Indication: ACNE
     Dosage: UNK
     Dates: start: 201904

REACTIONS (3)
  - Product use in unapproved indication [Unknown]
  - Weight increased [Unknown]
  - Off label use [Unknown]
